FAERS Safety Report 6361178-6 (Version None)
Quarter: 2009Q3

REPORT INFORMATION
  Report Type: 
  Country: None (occurrence: None)
  Receive Date: 20090918
  Receipt Date: 20090915
  Transmission Date: 20100115
  Serious: Yes (Life-Threatening, Hospitalization)
  Sender: FDA-Public Use
  Company Number: US-BAYER-200917079NA

PATIENT
  Age: 40 Year
  Sex: Female
  Weight: 78 kg

DRUGS (22)
  1. SORAFENIB [Suspect]
     Indication: CERVIX CARCINOMA
     Dosage: TOTAL DAILY DOSE: 400 MG  UNIT DOSE: 200 MG
     Route: 048
     Dates: start: 20081204, end: 20090222
  2. SORAFENIB [Suspect]
     Dosage: TOTAL DAILY DOSE: 400 MG  UNIT DOSE: 200 MG
     Route: 048
     Dates: start: 20090316, end: 20090325
  3. BEVACIZUMAB [Suspect]
     Indication: CERVIX CARCINOMA
     Route: 042
     Dates: start: 20081204, end: 20090122
  4. BEVACIZUMAB [Suspect]
     Route: 042
     Dates: start: 20090219, end: 20090219
  5. BEVACIZUMAB [Suspect]
     Route: 042
     Dates: start: 20090319, end: 20090319
  6. TAXOL [Suspect]
     Indication: CERVIX CARCINOMA
     Dosage: DAYS 1, 8, AND 15
  7. CYMBALTA [Concomitant]
     Indication: DEPRESSION
     Dosage: TOTAL DAILY DOSE: 60 MG
     Route: 048
     Dates: start: 20080101
  8. ALPRAZOLAM [Concomitant]
     Indication: ANXIETY
     Route: 048
     Dates: start: 20080101
  9. NORCO [Concomitant]
     Indication: PAIN
     Dosage: AS USED: 5/325 MG
     Route: 048
     Dates: start: 20080101, end: 20090305
  10. PRILOSEC [Concomitant]
     Indication: DYSPEPSIA
     Dosage: TOTAL DAILY DOSE: 20 MG
     Route: 048
     Dates: start: 20070101, end: 20090319
  11. PRILOSEC [Concomitant]
     Dosage: TOTAL DAILY DOSE: 40 MG
     Route: 048
     Dates: start: 20090319
  12. CHANTIX [Concomitant]
     Indication: EX-TOBACCO USER
     Dosage: TOTAL DAILY DOSE: 2 MG
     Route: 048
     Dates: start: 20080101, end: 20090301
  13. COMPAZINE [Concomitant]
     Indication: NAUSEA
     Dosage: TOTAL DAILY DOSE: 40 MG
     Route: 048
     Dates: start: 20070101
  14. LISINOPRIL [Concomitant]
     Indication: HYPERTENSION
     Dosage: TOTAL DAILY DOSE: 15 MG
     Route: 048
     Dates: start: 20090108
  15. ZOFRAN [Concomitant]
     Indication: NAUSEA
     Dosage: TOTAL DAILY DOSE: 24 MG
     Route: 048
     Dates: start: 20090130
  16. ZOFRAN [Concomitant]
     Dosage: 2 PRN
     Route: 048
     Dates: start: 20090130
  17. OXYCODONE [Concomitant]
     Indication: ABDOMINAL PAIN
     Dosage: 1-2 TABS Q 4-6 HRS PRN
     Route: 048
     Dates: start: 20090306
  18. OXYCONTIN [Concomitant]
     Indication: ABDOMINAL PAIN
     Dosage: TOTAL DAILY DOSE: 20 MG
     Route: 048
     Dates: start: 20090319
  19. OXYCONTIN [Concomitant]
     Dosage: TOTAL DAILY DOSE: 20 MG
     Route: 048
     Dates: start: 20090306, end: 20090308
  20. LEVAQUIN [Concomitant]
     Indication: URINARY TRACT INFECTION
     Dosage: TOTAL DAILY DOSE: 500 MG
     Route: 048
     Dates: start: 20090312, end: 20090319
  21. CLINDAMYCIN [Concomitant]
     Indication: RASH
     Dosage: APPLY BID TO BIKINI LINE AREA
     Route: 061
     Dates: start: 20090319
  22. VITAMIN B-12 [Concomitant]
     Dosage: TOTAL DAILY DOSE: 300 MG

REACTIONS (13)
  - ACTIVITIES OF DAILY LIVING IMPAIRED [None]
  - BLADDER PERFORATION [None]
  - CATHETER RELATED COMPLICATION [None]
  - CULTURE WOUND POSITIVE [None]
  - ENTEROCOCCAL INFECTION [None]
  - HYDRONEPHROSIS [None]
  - INTESTINAL PERFORATION [None]
  - LYMPHADENOPATHY [None]
  - NECROTISING FASCIITIS [None]
  - PERITONITIS [None]
  - RENAL HAEMATOMA [None]
  - RESPIRATORY DISTRESS [None]
  - SEPSIS [None]
